FAERS Safety Report 9123124 (Version 1)
Quarter: 2013Q1

REPORT INFORMATION
  Report Type: Spontaneous
  Country: US (occurrence: None)
  Receive Date: 20130225
  Receipt Date: 20130225
  Transmission Date: 20140127
  Serious: Yes (Other)
  Sender: FDA-Public Use
  Company Number: None

PATIENT
  Age: 48 Year
  Sex: 0
  Weight: 56.7 kg

DRUGS (2)
  1. ALPRAZOLAM 0.5 MG PUREPAC [Suspect]
     Indication: ANXIETY
     Dosage: 1 TABLET  3X/DAILY PO?1 1/2-2 YEARS
     Route: 048
  2. ALPRAZOLAM 0.5 MG PUREPAC [Suspect]
     Indication: PANIC DISORDER
     Dosage: 1 TABLET  3X/DAILY PO?1 1/2-2 YEARS
     Route: 048

REACTIONS (6)
  - Depression [None]
  - Panic attack [None]
  - Irritability [None]
  - Hostility [None]
  - Suicide attempt [None]
  - Overdose [None]
